FAERS Safety Report 9799702 (Version 2)
Quarter: 2014Q1

REPORT INFORMATION
  Report Type: Spontaneous
  Country: US (occurrence: US)
  Receive Date: 20140106
  Receipt Date: 20140106
  Transmission Date: 20141002
  Serious: No
  Sender: FDA-Public Use
  Company Number: US-GILEAD-2010-0031824

PATIENT
  Age: 60 Year
  Sex: Female
  Weight: 81.19 kg

DRUGS (11)
  1. LETAIRIS [Suspect]
     Indication: PULMONARY ARTERIAL HYPERTENSION
     Route: 048
     Dates: start: 20080731, end: 20100913
  2. REVATIO [Concomitant]
  3. LASIX [Concomitant]
  4. ALBUTEROL [Concomitant]
  5. FOSAMAX [Concomitant]
  6. VITAMIN D [Concomitant]
  7. CALCIUM W/D [Concomitant]
  8. FOLIC ACID [Concomitant]
  9. FERROUS SULFATE [Concomitant]
  10. POTASSIUM CHLORIDE [Concomitant]
  11. VITAMIN C [Concomitant]

REACTIONS (4)
  - Cough [Unknown]
  - Wheezing [Unknown]
  - Chest pain [Unknown]
  - Fatigue [Unknown]
